FAERS Safety Report 9351369 (Version 1)
Quarter: 2013Q2

REPORT INFORMATION
  Report Type: Spontaneous
  Country: US (occurrence: US)
  Receive Date: 20130617
  Receipt Date: 20130617
  Transmission Date: 20140414
  Serious: Yes (Other)
  Sender: FDA-Public Use
  Company Number: US-UPSHER-SMITH LABORATORIES, INC.-13001564

PATIENT
  Age: 83 Year
  Sex: Female

DRUGS (12)
  1. AMIODARONE HYDROCHLORIDE [Suspect]
     Indication: ARRHYTHMIA
     Dosage: 200 MG, UNK
     Route: 048
     Dates: start: 2012, end: 201210
  2. KLOR-CON M10 [Concomitant]
     Dosage: 10 MEQ, QD
  3. ATORVASTATIN [Concomitant]
     Dosage: 20 MG, QD
  4. AMLODIPINE [Concomitant]
     Dosage: UNK, QD
  5. LISINOPRIL [Concomitant]
     Dosage: UNK, QD
  6. HYDROCHLOROTHIAZIDE [Concomitant]
     Dosage: UNK, QD
  7. OMEPRAZOLE [Concomitant]
     Dosage: 25 MG, QD
  8. DIOVAN                             /01319601/ [Concomitant]
     Dosage: 160 MG, UNK
  9. METOPROLOL [Concomitant]
     Dosage: UNK, QD
  10. QUINAPRIL [Concomitant]
     Dosage: UNK, QD
  11. ASPIRIN [Concomitant]
     Dosage: 81 MG, QD
  12. CALCIUM 600 + D [Concomitant]
     Dosage: UNK

REACTIONS (3)
  - Pulmonary toxicity [Not Recovered/Not Resolved]
  - Dyspnoea [Not Recovered/Not Resolved]
  - General physical health deterioration [None]
